FAERS Safety Report 9900638 (Version 1)
Quarter: 2014Q1

REPORT INFORMATION
  Report Type: Spontaneous
  Country: US (occurrence: US)
  Receive Date: 20140217
  Receipt Date: 20140217
  Transmission Date: 20141002
  Serious: No
  Sender: FDA-Public Use
  Company Number: US-009507513-1401USA013346

PATIENT
  Age: 63 Year
  Sex: Male

DRUGS (5)
  1. DULERA [Suspect]
     Indication: ASTHMA
     Dosage: 2 DOSES IN THE MORNING AND 2 DOSES AT NIGHT
     Route: 048
     Dates: start: 201304, end: 2013
  2. DULERA [Suspect]
     Dosage: 2 DOSES IN THE MORNING AND 2 DOSES AT NIGHT
     Route: 048
  3. DULERA [Suspect]
     Dosage: 2 DF, BID
     Route: 048
  4. ZYRTEC [Concomitant]
     Dosage: UNK
  5. TESTOSTERONE [Concomitant]
     Dosage: UNK

REACTIONS (3)
  - Asthma [Recovering/Resolving]
  - Product quality issue [Unknown]
  - Drug dose omission [Unknown]
